FAERS Safety Report 9631937 (Version 1)
Quarter: 2013Q4

REPORT INFORMATION
  Report Type: Spontaneous
  Country: GB (occurrence: None)
  Receive Date: 20131015
  Receipt Date: 20131015
  Transmission Date: 20140711
  Serious: No
  Sender: FDA-Public Use
  Company Number: TPA2013A07861

PATIENT
  Sex: 0

DRUGS (1)
  1. ADENURIC (FEBUXOSTAT) TABLET [Suspect]

REACTIONS (3)
  - Electrocardiogram change [None]
  - Atrial fibrillation [None]
  - Electrocardiogram QT prolonged [None]
